FAERS Safety Report 13611027 (Version 1)
Quarter: 2017Q2

REPORT INFORMATION
  Report Type: Spontaneous
  Country: US (occurrence: US)
  Receive Date: 20170603
  Receipt Date: 20170603
  Transmission Date: 20170830
  Serious: No
  Sender: FDA-Public Use
  Company Number: None

PATIENT
  Age: 65 Year
  Sex: Male
  Weight: 103.5 kg

DRUGS (18)
  1. FLUOXETINE [Concomitant]
     Active Substance: FLUOXETINE HYDROCHLORIDE
  2. PRAVASTATIN. [Concomitant]
     Active Substance: PRAVASTATIN
  3. PROBIOTIC [Concomitant]
     Active Substance: PROBIOTICS NOS
  4. CHOLECALCIFEROL [Concomitant]
     Active Substance: CHOLECALCIFEROL
  5. ASPIRIN. [Concomitant]
     Active Substance: ASPIRIN
  6. EPINEPHRINE EPI PEN [Concomitant]
  7. HYDROCHLOROTHIAZIDE. [Concomitant]
     Active Substance: HYDROCHLOROTHIAZIDE
  8. LEVOTHYROXINE. [Concomitant]
     Active Substance: LEVOTHYROXINE
  9. COQ10 [Concomitant]
     Active Substance: UBIDECARENONE
  10. FISH OIL [Concomitant]
     Active Substance: FISH OIL
  11. LISINOPRIL. [Concomitant]
     Active Substance: LISINOPRIL
  12. METOPROLOL. [Concomitant]
     Active Substance: METOPROLOL
  13. PRAMIPEXOLE. [Suspect]
     Active Substance: PRAMIPEXOLE
     Indication: BIPOLAR DISORDER
     Dosage: ?          QUANTITY:3 TABLET(S);?
     Route: 048
  14. DICLOFENAC [Concomitant]
     Active Substance: DICLOFENAC
  15. VALACYCLOVIR [Concomitant]
     Active Substance: VALACYCLOVIR HYDROCHLORIDE
  16. LAMOTRIGINE. [Concomitant]
     Active Substance: LAMOTRIGINE
  17. MULTIVITAMIN [Concomitant]
     Active Substance: VITAMINS
  18. MELATONIN [Concomitant]
     Active Substance: MELATONIN

REACTIONS (1)
  - Sleep terror [None]

NARRATIVE: CASE EVENT DATE: 20170601
